FAERS Safety Report 20198935 (Version 1)
Quarter: 2021Q4

REPORT INFORMATION
  Report Type: Spontaneous
  Country: IN (occurrence: IN)
  Receive Date: 20211217
  Receipt Date: 20211217
  Transmission Date: 20220303
  Serious: Yes (Life-Threatening, Hospitalization)
  Sender: FDA-Public Use
  Company Number: IN-MYLANLABS-2021M1093478

PATIENT
  Age: 40 Year
  Sex: Male

DRUGS (2)
  1. DEXAMETHASONE [Suspect]
     Active Substance: DEXAMETHASONE
     Indication: COVID-19
     Dosage: 6 MILLIGRAM, QD WAS CONTINUED FOR 14 DAYS
     Route: 042
  2. PREDNISOLONE [Suspect]
     Active Substance: PREDNISOLONE
     Indication: COVID-19
     Dosage: 40 MILLIGRAM, QD FOR 5 DAYS
     Route: 048

REACTIONS (6)
  - Necrotising colitis [Recovered/Resolved]
  - Hepatic amoebiasis [Recovered/Resolved]
  - Off label use [Unknown]
  - Postoperative wound infection [Recovered/Resolved]
  - Fascial infection [Recovered/Resolved]
  - Dehiscence [Recovered/Resolved]
